FAERS Safety Report 15479779 (Version 3)
Quarter: 2019Q1

REPORT INFORMATION
  Report Type: Report from Study
  Country: CA (occurrence: CA)
  Receive Date: 20181009
  Receipt Date: 20190101
  Transmission Date: 20190417
  Serious: Yes (Hospitalization)
  Sender: FDA-Public Use
  Company Number: CA-GLAXOSMITHKLINE-CA2018GSK181840

PATIENT
  Sex: Female

DRUGS (3)
  1. MEPOLIZUMAB [Suspect]
     Active Substance: MEPOLIZUMAB
     Dosage: 100 MG, Z, MONTHLY
     Route: 042
  2. MEPOLIZUMAB [Suspect]
     Active Substance: MEPOLIZUMAB
     Indication: ASTHMA
     Dosage: 100 MG, Z,MONTHLY
     Route: 042
  3. VENTOLIN [Suspect]
     Active Substance: ALBUTEROL SULFATE
     Indication: ASTHMA
     Dosage: UNK

REACTIONS (5)
  - Loss of personal independence in daily activities [Recovering/Resolving]
  - Wheezing [Recovered/Resolved]
  - Asthma [Unknown]
  - Dyspnoea [Recovering/Resolving]
  - Sleep disorder due to a general medical condition [Recovered/Resolved]
